FAERS Safety Report 19104746 (Version 3)
Quarter: 2021Q3

REPORT INFORMATION
  Report Type: Spontaneous
  Country: US (occurrence: US)
  Receive Date: 20210408
  Receipt Date: 20210830
  Transmission Date: 20211014
  Serious: Yes (Other)
  Sender: FDA-Public Use
  Company Number: US-BLUEPRINT MEDICINES CORPORATION-SP-US-2021-000457

PATIENT
  Sex: Female

DRUGS (2)
  1. AYVAKIT [Suspect]
     Active Substance: AVAPRITINIB
     Indication: GASTROINTESTINAL STROMAL TUMOUR
     Route: 048
     Dates: start: 20191118
  2. AYVAKIT [Suspect]
     Active Substance: AVAPRITINIB
     Dosage: TAKE 2 TABLET BY MOUTH DAILY ON MON/WED/FRI AND 1 TABLET ON TUE/THUR/SAT/SUN ON EMPTY STOMACH
     Route: 048
     Dates: start: 20191118

REACTIONS (5)
  - Nausea [Unknown]
  - Tumour pain [Unknown]
  - Drug ineffective [Unknown]
  - Blood test abnormal [Unknown]
  - Hepatic neoplasm [Unknown]
